FAERS Safety Report 8486470-0 (Version None)
Quarter: 2012Q3

REPORT INFORMATION
  Report Type: 
  Country: None (occurrence: None)
  Receive Date: 20120703
  Receipt Date: 20120702
  Transmission Date: 20120928
  Serious: Yes (Other)
  Sender: FDA-Public Use
  Company Number: GB-PFIZER INC-2012143366

PATIENT
  Age: 13 Year
  Sex: Female

DRUGS (1)
  1. METHYLPREDNISOLONE SODIUM SUCCINATE [Suspect]
     Dosage: 1 G, UNK
     Route: 042
     Dates: start: 20120523, end: 20120523

REACTIONS (3)
  - FLUSHING [None]
  - COLD SWEAT [None]
  - NAUSEA [None]
